FAERS Safety Report 10600829 (Version 1)
Quarter: 2014Q4

REPORT INFORMATION
  Report Type: Spontaneous
  Country: US (occurrence: None)
  Receive Date: 20141120
  Receipt Date: 20141120
  Transmission Date: 20150529
  Serious: Yes (Death, Hospitalization)
  Sender: FDA-Public Use
  Company Number: 2014/078

PATIENT
  Age: 78 Year
  Sex: Female

DRUGS (2)
  1. VANCOMYCIN (NO PREF. NAME) [Suspect]
     Active Substance: VANCOMYCIN
     Indication: PNEUMONIA
     Dosage: UNK, UNK + UNK
  2. LEVOFLOXACIN (NO PREF. NAME) 500 MG [Suspect]
     Active Substance: LEVOFLOXACIN
     Indication: PNEUMONIA
     Dosage: UNK, UNK + UNK?

REACTIONS (4)
  - Multi-organ failure [None]
  - Disease complication [None]
  - Disseminated intravascular coagulation [None]
  - Acute generalised exanthematous pustulosis [None]
